FAERS Safety Report 23941503 (Version 1)
Quarter: 2024Q2

REPORT INFORMATION
  Report Type: Report from Study
  Country: CA (occurrence: CA)
  Receive Date: 20240605
  Receipt Date: 20240605
  Transmission Date: 20240716
  Serious: Yes (Other)
  Sender: FDA-Public Use
  Company Number: CA-JNJFOC-20240587945

PATIENT
  Age: 43 Year
  Sex: Male
  Weight: 102.6 kg

DRUGS (2)
  1. REMICADE [Suspect]
     Active Substance: INFLIXIMAB
     Indication: Ankylosing spondylitis
     Route: 041
     Dates: start: 20150623
  2. REMICADE [Suspect]
     Active Substance: INFLIXIMAB
     Route: 041

REACTIONS (8)
  - Joint stiffness [Unknown]
  - Throat irritation [Recovered/Resolved]
  - Arthralgia [Unknown]
  - Myalgia [Unknown]
  - Rash [Recovered/Resolved]
  - Infusion related reaction [Unknown]
  - Therapeutic response decreased [Unknown]
  - Off label use [Unknown]
